FAERS Safety Report 4318058-7 (Version None)
Quarter: 2004Q1

REPORT INFORMATION
  Report Type: 
  Country: None (occurrence: None)
  Receive Date: 20040317
  Receipt Date: 20040305
  Transmission Date: 20041129
  Serious: Yes (Hospitalization)
  Sender: FDA-Public Use
  Company Number: FR-BRISTOL-MYERS SQUIBB COMPANY-12525143

PATIENT
  Age: 65 Year
  Sex: Male
  Weight: 66 kg

DRUGS (2)
  1. CISPLATIN [Suspect]
     Indication: BLADDER CANCER
     Dosage: 1ST DOSE - 08AUG03
     Dates: start: 20040120, end: 20040120
  2. GEMCITABINE [Suspect]
     Indication: BLADDER CANCER
     Dosage: 1ST DOSE - 08AUG03
     Dates: start: 20040127, end: 20040127

REACTIONS (2)
  - ESCHERICHIA INFECTION [None]
  - PYREXIA [None]
